FAERS Safety Report 23156142 (Version 1)
Quarter: 2023Q4

REPORT INFORMATION
  Report Type: Spontaneous
  Country: TH (occurrence: TH)
  Receive Date: 20231107
  Receipt Date: 20231107
  Transmission Date: 20240110
  Serious: Yes (Hospitalization)
  Sender: FDA-Public Use
  Company Number: TH-WW-2023-APC-019864

PATIENT
  Age: 90 Year
  Sex: Male

DRUGS (1)
  1. AVODART [Suspect]
     Active Substance: DUTASTERIDE
     Route: 065

REACTIONS (1)
  - Genital pain [Unknown]
